FAERS Safety Report 25951450 (Version 2)
Quarter: 2025Q4

REPORT INFORMATION
  Report Type: Spontaneous
  Country: ID (occurrence: ID)
  Receive Date: 20251023
  Receipt Date: 20251105
  Transmission Date: 20260118
  Serious: No
  Sender: SANOFI AVENTIS
  Company Number: ID-SA-2025SA311126

PATIENT
  Age: 42 Year
  Sex: Female

DRUGS (2)
  1. THYROGEN [Suspect]
     Active Substance: THYROTROPIN ALFA
     Indication: Thyroid cancer
     Dosage: 0.9 MG
     Route: 030
     Dates: start: 20251014, end: 20251015
  2. EUTHYROX [Concomitant]
     Active Substance: LEVOTHYROXINE SODIUM
     Dosage: 75 MG/KG

REACTIONS (2)
  - Blood thyroid stimulating hormone increased [Recovered/Resolved]
  - Headache [Recovered/Resolved]

NARRATIVE: CASE EVENT DATE: 20251001
